FAERS Safety Report 6026611-8 (Version None)
Quarter: 2008Q4

REPORT INFORMATION
  Report Type: 
  Country: None (occurrence: None)
  Receive Date: 20081231
  Receipt Date: 20081222
  Transmission Date: 20090506
  Serious: Yes (Other)
  Sender: FDA-Public Use
  Company Number: CHPA2008US23006

PATIENT
  Age: 69 Year
  Sex: Female

DRUGS (3)
  1. MAALOX MS TOTAL STOMACH RELIEF (NCH)(BISMUTH SUBSALICYLATE) SUSPENSION [Suspect]
     Indication: DYSPEPSIA
     Dosage: 1 TO 2 SWIGS, TWICE A DAY, ORAL
     Route: 048
  2. MAALOX MS TOTAL STOMACH RELIEF (NCH)(BISMUTH SUBSALICYLATE) SUSPENSION [Suspect]
     Indication: NAUSEA
     Dosage: 1 TO 2 SWIGS, TWICE A DAY, ORAL
     Route: 048
  3. EMETROL (INVERT SUGAR, PHOSPHORIC ACID) [Concomitant]

REACTIONS (8)
  - ABDOMINAL DISCOMFORT [None]
  - ADHESION [None]
  - CHOLECYSTITIS [None]
  - CHOLELITHIASIS [None]
  - DRUG INEFFECTIVE [None]
  - FAECES DISCOLOURED [None]
  - FITZ-HUGH-CURTIS SYNDROME [None]
  - WRONG TECHNIQUE IN DRUG USAGE PROCESS [None]
